FAERS Safety Report 5630207-7 (Version None)
Quarter: 2008Q1

REPORT INFORMATION
  Report Type: 
  Country: None (occurrence: None)
  Receive Date: 20080219
  Receipt Date: 20080208
  Transmission Date: 20080703
  Serious: Yes (Other)
  Sender: FDA-Public Use
  Company Number: US-TEVA-167278USA

PATIENT
  Age: 44 Year
  Sex: Male

DRUGS (2)
  1. SALBUTAMOL SULFATE INHALATION, 0.09 MG [Suspect]
     Indication: INFLUENZA
     Dosage: 2 PUFFS EVERY 6 HOURS
     Route: 055
     Dates: start: 20080205
  2. PREDNISONE TAB [Concomitant]

REACTIONS (1)
  - HAEMOPTYSIS [None]
